FAERS Safety Report 7571878-8 (Version None)
Quarter: 2011Q2

REPORT INFORMATION
  Report Type: 
  Country: None (occurrence: None)
  Receive Date: 20110624
  Receipt Date: 20100615
  Transmission Date: 20111010
  Serious: No
  Sender: FDA-Public Use
  Company Number: A0865281A

PATIENT
  Age: 81 Year
  Sex: Male

DRUGS (5)
  1. ASPIRIN [Concomitant]
  2. OMEPRAZOLE [Concomitant]
  3. VERAMYST [Suspect]
     Dosage: 1SPR TWICE PER DAY
     Route: 045
     Dates: start: 20100401, end: 20100606
  4. MULTI-VITAMIN [Concomitant]
  5. UNSPECIFIED NASAL SPRAY [Suspect]
     Route: 045

REACTIONS (2)
  - PRURITUS [None]
  - RASH [None]
